FAERS Safety Report 4387309-5 (Version None)
Quarter: 2004Q2

REPORT INFORMATION
  Report Type: 
  Country: None (occurrence: None)
  Receive Date: 20040630
  Receipt Date: 20040408
  Transmission Date: 20050107
  Serious: No
  Sender: FDA-Public Use
  Company Number: US-GLAXOSMITHKLINE-A0506386A

PATIENT
  Sex: Male

DRUGS (5)
  1. ADVAIR HFA [Suspect]
     Indication: ILL-DEFINED DISORDER
     Dosage: 1PUFF TWICE PER DAY
     Route: 055
     Dates: start: 20040323
  2. NEXIUM [Concomitant]
  3. LIPITOR [Concomitant]
  4. MICROZIDE [Concomitant]
  5. ZESTORETIC [Concomitant]

REACTIONS (1)
  - APHONIA [None]
